FAERS Safety Report 14756775 (Version 1)
Quarter: 2018Q2

REPORT INFORMATION
  Report Type: Spontaneous
  Country: US (occurrence: US)
  Receive Date: 20180413
  Receipt Date: 20180413
  Transmission Date: 20180711
  Serious: No
  Sender: FDA-Public Use
  Company Number: US-BION-006508

PATIENT
  Age: 60 Year
  Sex: Female
  Weight: 79.02 kg

DRUGS (1)
  1. ALEVE [Suspect]
     Active Substance: NAPROXEN SODIUM
     Indication: PAIN
     Dosage: STARTED 1 YEAR AGO,??DOSE: TOOK IT FOR THREE NIGHTS (2 LIQUID GELS PER NIGHT)
     Route: 048

REACTIONS (3)
  - Incorrect drug administration duration [Not Recovered/Not Resolved]
  - Expired product administered [Not Recovered/Not Resolved]
  - Drug prescribing error [Not Recovered/Not Resolved]
